FAERS Safety Report 8843406 (Version 2)
Quarter: 2013Q4

REPORT INFORMATION
  Report Type: Spontaneous
  Country: CA (occurrence: CA)
  Receive Date: 20121016
  Receipt Date: 20131118
  Transmission Date: 20140711
  Serious: Yes (Disabling)
  Sender: FDA-Public Use
  Company Number: CA-ELI_LILLY_AND_COMPANY-CA201210001925

PATIENT
  Age: 53 Year
  Sex: Female

DRUGS (9)
  1. HUMALOG LISPRO [Suspect]
     Indication: DIABETES MELLITUS
     Dosage: 20 U, QD
     Route: 065
  2. HUMALOG LISPRO [Suspect]
     Dosage: 4 U, QD
     Route: 065
  3. HUMALOG LISPRO [Suspect]
     Dosage: 6 U, QD
     Route: 065
  4. HUMALOG LISPRO [Suspect]
     Dosage: 20 U, QD
     Route: 065
  5. HUMALOG LISPRO [Suspect]
     Dosage: 4 U, QD
     Route: 065
  6. LANTUS [Suspect]
     Indication: DIABETES MELLITUS
     Dosage: 15 U, QD
     Route: 058
  7. LANTUS [Suspect]
     Dosage: 32 U, QD
     Route: 058
  8. LANTUS [Suspect]
     Dosage: 12 U, QD
     Route: 058
  9. LANTUS [Suspect]
     Dosage: 15 U, QD
     Route: 058

REACTIONS (3)
  - Renal failure [Unknown]
  - Hyperglycaemia [Unknown]
  - Hypoglycaemia [Unknown]
